FAERS Safety Report 21780346 (Version 1)
Quarter: 2022Q4

REPORT INFORMATION
  Report Type: Spontaneous
  Country: US (occurrence: US)
  Receive Date: 20221227
  Receipt Date: 20221227
  Transmission Date: 20230113
  Serious: Yes (Hospitalization, Other)
  Sender: FDA-Public Use
  Company Number: US-BIOVITRUM-2022US14762

PATIENT
  Age: 0 Year
  Sex: Female
  Weight: 4 kg

DRUGS (1)
  1. SYNAGIS [Suspect]
     Active Substance: PALIVIZUMAB
     Indication: Anomalous pulmonary venous connection

REACTIONS (1)
  - Pulmonary vein stenosis [Unknown]

NARRATIVE: CASE EVENT DATE: 20221101
